FAERS Safety Report 4378586-5 (Version None)
Quarter: 2004Q2

REPORT INFORMATION
  Report Type: 
  Country: None (occurrence: None)
  Receive Date: 20040609
  Receipt Date: 20040525
  Transmission Date: 20050107
  Serious: Yes (Death, Life-Threatening)
  Sender: FDA-Public Use
  Company Number: 205152

PATIENT
  Sex: Female

DRUGS (4)
  1. HERCEPTIN        (TRASTUZUMAB) [Suspect]
     Indication: BREAST CANCER METASTATIC
     Dosage: SEE IMAGE
     Route: 042
     Dates: start: 20040216, end: 20040216
  2. HERCEPTIN        (TRASTUZUMAB) [Suspect]
     Indication: BREAST CANCER METASTATIC
     Dosage: SEE IMAGE
     Route: 042
     Dates: start: 20040224, end: 20040224
  3. TAXOL [Concomitant]
  4. STEROID (STEROID NOS) [Concomitant]

REACTIONS (2)
  - NEUTROPHIL COUNT DECREASED [None]
  - RENAL FAILURE ACUTE [None]
